FAERS Safety Report 16631018 (Version 3)
Quarter: 2019Q3

REPORT INFORMATION
  Report Type: Report from Study
  Country: US (occurrence: US)
  Receive Date: 20190725
  Receipt Date: 20190808
  Transmission Date: 20191004
  Serious: Yes (Death, Hospitalization, Other)
  Sender: FDA-Public Use
  Company Number: PHEH2019US030830

PATIENT
  Age: 51 Year
  Sex: Female
  Weight: 77 kg

DRUGS (1)
  1. ENTRESTO [Suspect]
     Active Substance: SACUBITRIL\VALSARTAN
     Indication: PRODUCT USED FOR UNKNOWN INDICATION
     Dosage: 50 MG, BID (SACUBITRIL 24 MG, VALSARTAN 26 MG)
     Route: 065

REACTIONS (3)
  - Chronic kidney disease [Unknown]
  - Death [Fatal]
  - Ejection fraction decreased [Unknown]

NARRATIVE: CASE EVENT DATE: 201905
